FAERS Safety Report 23884851 (Version 4)
Quarter: 2024Q2

REPORT INFORMATION
  Report Type: Spontaneous
  Country: US (occurrence: US)
  Receive Date: 20240522
  Receipt Date: 20240607
  Transmission Date: 20240716
  Serious: No
  Sender: FDA-Public Use
  Company Number: US-SA-SAC20240515000425

PATIENT
  Age: 58 Year
  Sex: Female

DRUGS (3)
  1. DUPIXENT [Suspect]
     Active Substance: DUPILUMAB
     Indication: Dermatitis allergic
     Dosage: 300 MG, QOW
     Route: 058
     Dates: start: 20240310
  2. DUPIXENT [Suspect]
     Active Substance: DUPILUMAB
     Indication: Dermatitis contact
     Dosage: 300 MG, QOW
     Route: 058
     Dates: start: 20240410
  3. DUPIXENT [Suspect]
     Active Substance: DUPILUMAB
     Indication: Dermatitis atopic

REACTIONS (13)
  - Anxiety [Not Recovered/Not Resolved]
  - Dermatitis contact [Unknown]
  - Condition aggravated [Unknown]
  - Periorbital swelling [Unknown]
  - Swelling [Unknown]
  - Rash erythematous [Unknown]
  - Erythema [Unknown]
  - Eye pruritus [Unknown]
  - Eczema [Not Recovered/Not Resolved]
  - Drug ineffective [Unknown]
  - Intentional dose omission [Unknown]
  - Product use in unapproved indication [Unknown]
  - Inappropriate schedule of product administration [Unknown]

NARRATIVE: CASE EVENT DATE: 20240101
